FAERS Safety Report 18306441 (Version 1)
Quarter: 2020Q3

REPORT INFORMATION
  Report Type: Spontaneous
  Country: CA (occurrence: CA)
  Receive Date: 20200924
  Receipt Date: 20200924
  Transmission Date: 20201103
  Serious: Yes (Other)
  Sender: FDA-Public Use
  Company Number: CA-ACCORD-202195

PATIENT
  Age: 70 Year
  Sex: Male

DRUGS (11)
  1. RANITIDINE. [Concomitant]
     Active Substance: RANITIDINE
  2. ENTOCORT ENEMA [Concomitant]
     Dosage: AS REQUIRED
  3. VEDOLIZUMAB [Concomitant]
     Active Substance: VEDOLIZUMAB
     Indication: COLITIS ULCERATIVE
     Route: 042
  4. ANUSOL?HC [Concomitant]
     Active Substance: HYDROCORTISONE
     Dosage: AS REQUIRED
     Route: 061
  5. METHOTREXATE. [Suspect]
     Active Substance: METHOTREXATE
     Indication: COLITIS ULCERATIVE
     Dosage: 1 EVERY 1 WEEKS
     Route: 048
  6. ROSUVASTATIN/ROSUVASTATIN CALCIUM [Concomitant]
     Active Substance: ROSUVASTATIN CALCIUM
  7. ACETYLSALICYLIC ACID [Concomitant]
     Active Substance: ASPIRIN
  8. HYDROCHLOROTHIAZIDE. [Concomitant]
     Active Substance: HYDROCHLOROTHIAZIDE
  9. ASA [Concomitant]
     Active Substance: ASPIRIN
     Dosage: AS REQUIRED
  10. FOLIC ACID. [Concomitant]
     Active Substance: FOLIC ACID
     Indication: COLITIS ULCERATIVE
     Dosage: 1 EVERY 1 WEEKS
  11. ASA [Concomitant]
     Active Substance: ASPIRIN
     Dosage: AS REQUIRED

REACTIONS (3)
  - Rectal tenesmus [Unknown]
  - Off label use [Unknown]
  - Condition aggravated [Unknown]
